FAERS Safety Report 22359830 (Version 1)
Quarter: 2023Q2

REPORT INFORMATION
  Report Type: Spontaneous
  Country: US (occurrence: US)
  Receive Date: 20230524
  Receipt Date: 20230524
  Transmission Date: 20230721
  Serious: Yes (Other)
  Sender: FDA-Public Use
  Company Number: US-009507513-2305USA005060

PATIENT
  Sex: Male

DRUGS (4)
  1. TEMODAR [Suspect]
     Active Substance: TEMOZOLOMIDE
     Indication: Phaeochromocytoma
     Dates: start: 202202, end: 202303
  2. TEMODAR [Suspect]
     Active Substance: TEMOZOLOMIDE
     Indication: Paraganglion neoplasm
  3. XELODA [Suspect]
     Active Substance: CAPECITABINE
     Indication: Phaeochromocytoma
     Dosage: UNK
     Dates: start: 202202
  4. XELODA [Suspect]
     Active Substance: CAPECITABINE
     Indication: Paraganglion neoplasm
     Dosage: UNK
     Dates: start: 202301, end: 202303

REACTIONS (1)
  - Malignant neoplasm progression [Not Recovered/Not Resolved]
